FAERS Safety Report 6102076-2 (Version None)
Quarter: 2009Q1

REPORT INFORMATION
  Report Type: 
  Country: None (occurrence: None)
  Receive Date: 20090304
  Receipt Date: 20081204
  Transmission Date: 20090719
  Serious: Yes (Other)
  Sender: FDA-Public Use
  Company Number: US-PFIZER INC-2008158426

PATIENT
  Sex: Female
  Weight: 76.644 kg

DRUGS (4)
  1. CHANTIX [Suspect]
     Indication: SMOKING CESSATION THERAPY
     Route: 048
     Dates: start: 20081127, end: 20081203
  2. ZOCOR [Interacting]
     Indication: BLOOD CHOLESTEROL
     Dosage: FREQUENCY: QHS
     Route: 048
     Dates: start: 20081101
  3. HERBAL PREPARATION [Concomitant]
     Indication: MENOPAUSE
     Dosage: UNK
  4. SKELAXIN [Concomitant]
     Dosage: UNK

REACTIONS (4)
  - DEPRESSED MOOD [None]
  - HOMICIDAL IDEATION [None]
  - PSYCHOTIC DISORDER [None]
  - SUICIDAL IDEATION [None]
